FAERS Safety Report 5360717-1 (Version None)
Quarter: 2007Q2

REPORT INFORMATION
  Report Type: 
  Country: None (occurrence: None)
  Receive Date: 20070530
  Receipt Date: 20070410
  Transmission Date: 20071010
  Serious: No
  Sender: FDA-Public Use
  Company Number: 2007PV029839

PATIENT
  Age: 50 Year
  Sex: Male
  Weight: 122.4712 kg

DRUGS (7)
  1. BYETTA [Suspect]
     Indication: DIABETES MELLITUS NON-INSULIN-DEPENDENT
     Dosage: 5 MCG;QD;SC 5 MCG;QPM;SC
     Route: 058
     Dates: start: 20070204
  2. BYETTA [Suspect]
     Indication: DIABETES MELLITUS NON-INSULIN-DEPENDENT
     Dosage: 5 MCG;QD;SC 5 MCG;QPM;SC
     Route: 058
     Dates: start: 20070211
  3. METFORMIN HCL [Concomitant]
  4. AVANDIA [Concomitant]
  5. CADUET [Concomitant]
  6. PLAVIX [Concomitant]
  7. METOPROLOL SUCCINATE [Concomitant]

REACTIONS (3)
  - BLOOD GLUCOSE INCREASED [None]
  - INSOMNIA [None]
  - NAUSEA [None]
